FAERS Safety Report 20733344 (Version 1)
Quarter: 2022Q2

REPORT INFORMATION
  Report Type: Report from Study
  Country: DE (occurrence: DE)
  Receive Date: 20220421
  Receipt Date: 20220421
  Transmission Date: 20220721
  Serious: Yes (Hospitalization, Other)
  Sender: FDA-Public Use
  Company Number: DE-CELLTRION INC.-2022DE004780

PATIENT

DRUGS (4)
  1. INFLIXIMAB-DYYB [Suspect]
     Active Substance: INFLIXIMAB-DYYB
     Indication: Axial spondyloarthritis
     Dosage: 120 MILLIGRAM, EVERY 2 WEEKS
     Route: 058
     Dates: start: 20210915
  2. NAPROXEN [Concomitant]
     Active Substance: NAPROXEN
     Dosage: 500 MILLIGRAM, 7 DAYS PER WEEK
     Dates: start: 20210608
  3. SIMPONI [Concomitant]
     Active Substance: GOLIMUMAB
     Dosage: 50MG EVERY 4 WEEKS
     Dates: start: 20200502, end: 20210515
  4. SIMPONI [Concomitant]
     Active Substance: GOLIMUMAB
     Dosage: 100MG EVERY 4 WEEKS
     Dates: start: 20210615, end: 20210815

REACTIONS (3)
  - Osteochondrosis [Unknown]
  - Intervertebral disc degeneration [Unknown]
  - Spinal stenosis [Unknown]

NARRATIVE: CASE EVENT DATE: 20211011
